FAERS Safety Report 11792958 (Version 1)
Quarter: 2015Q4

REPORT INFORMATION
  Report Type: Spontaneous
  Country: US (occurrence: None)
  Receive Date: 20151130
  Receipt Date: 20151130
  Transmission Date: 20160305
  Serious: Yes (Hospitalization)
  Sender: FDA-Public Use
  Company Number: 2015US-106541

PATIENT
  Age: 60 Year
  Sex: Male

DRUGS (1)
  1. AMITRIPTYLINE (AMITRIPTYLINE) UNKNOWN [Suspect]
     Active Substance: AMITRIPTYLINE
     Indication: PRODUCT USED FOR UNKNOWN INDICATION
     Route: 048

REACTIONS (9)
  - Tachycardia [None]
  - Mydriasis [None]
  - Respiratory acidosis [None]
  - Electrocardiogram QRS complex prolonged [None]
  - Overdose [None]
  - Coma [None]
  - Hypotension [None]
  - Dyspnoea [None]
  - Metabolic acidosis [None]
